FAERS Safety Report 6815384-4 (Version None)
Quarter: 2010Q2

REPORT INFORMATION
  Report Type: 
  Country: None (occurrence: None)
  Receive Date: 20100629
  Receipt Date: 20100616
  Transmission Date: 20101027
  Serious: Yes (Other)
  Sender: FDA-Public Use
  Company Number: WAES 1006USA01059

PATIENT
  Age: 79 Year
  Sex: Female

DRUGS (5)
  1. HYZAAR [Suspect]
     Indication: HYPERTENSION
     Dosage: 1 TAB/DAILY, PO
     Route: 048
     Dates: start: 20071210
  2. ALSIODOL [Concomitant]
  3. MUCOSTA [Concomitant]
  4. NORVASC [Concomitant]
  5. PEPCID [Concomitant]

REACTIONS (3)
  - BLOOD CREATININE INCREASED [None]
  - BLOOD URIC ACID INCREASED [None]
  - PROTEIN URINE PRESENT [None]
